FAERS Safety Report 7881895-6 (Version None)
Quarter: 2011Q4

REPORT INFORMATION
  Report Type: 
  Country: None (occurrence: None)
  Receive Date: 20111101
  Receipt Date: 20110602
  Transmission Date: 20120403
  Serious: Yes (Other)
  Sender: FDA-Public Use
  Company Number: US-AMGEN-USASP2011021118

PATIENT
  Age: 76 Year
  Sex: Female

DRUGS (1)
  1. ENBREL [Suspect]
     Indication: RHEUMATOID ARTHRITIS
     Dosage: 50 MG, QWK
     Dates: start: 20100419

REACTIONS (5)
  - ARTHRALGIA [None]
  - RED BLOOD CELL COUNT INCREASED [None]
  - LEUKAEMIA [None]
  - PAIN IN EXTREMITY [None]
  - INJECTION SITE PAIN [None]
